FAERS Safety Report 9331671 (Version 1)
Quarter: 2013Q2

REPORT INFORMATION
  Report Type: Spontaneous
  Country: US (occurrence: US)
  Receive Date: 20130605
  Receipt Date: 20130605
  Transmission Date: 20140414
  Serious: No
  Sender: FDA-Public Use
  Company Number: US-PFIZER INC-2013167674

PATIENT
  Age: 76 Year
  Sex: Female

DRUGS (2)
  1. ADVIL [Suspect]
     Indication: PEMPHIGUS
     Dosage: UNK
  2. ADVIL [Suspect]
     Indication: ARTHRITIS

REACTIONS (3)
  - Off label use [Unknown]
  - Gastrointestinal injury [Unknown]
  - Product coating issue [Unknown]
